FAERS Safety Report 20668828 (Version 2)
Quarter: 2022Q2

REPORT INFORMATION
  Report Type: Spontaneous
  Country: EE (occurrence: None)
  Receive Date: 20220404
  Receipt Date: 20220427
  Transmission Date: 20220721
  Serious: Yes (Death)
  Sender: FDA-Public Use
  Company Number: EE-ROCHE-3063889

PATIENT
  Age: 79 Year
  Sex: Male

DRUGS (3)
  1. MABTHERA [Suspect]
     Active Substance: RITUXIMAB
     Indication: Rheumatoid arthritis
     Dosage: RECEIVED MABTHERA TREATMENT FROM 2009. LAST TREATMENT COURSE: MABTHERA INFUSIONS ON 10/AUG/2021 AND
     Route: 041
     Dates: start: 2009
  2. SULFASALAZINE [Concomitant]
     Active Substance: SULFASALAZINE
     Dosage: TAB SALAZOPYRIN 1.0X  2
  3. MEDROL [Concomitant]
     Active Substance: METHYLPREDNISOLONE
     Dosage: TAB MEDROL 4 MG X 1

REACTIONS (1)
  - COVID-19 [Fatal]

NARRATIVE: CASE EVENT DATE: 20211001
